FAERS Safety Report 8182097-9 (Version None)
Quarter: 2012Q1

REPORT INFORMATION
  Report Type: 
  Country: None (occurrence: None)
  Receive Date: 20120302
  Receipt Date: 20120223
  Transmission Date: 20120608
  Serious: Yes (Hospitalization, Other)
  Sender: FDA-Public Use
  Company Number: PHHY2012FR007505

PATIENT
  Sex: Female

DRUGS (9)
  1. PRAVASTATIN [Concomitant]
     Dosage: 1 DF,DAILY
  2. FERROUS FUMARATE [Concomitant]
     Dosage: 1 DF, DAILY
  3. FEMARA [Suspect]
     Indication: BREAST CANCER
     Dosage: 1 DF DAILY
     Route: 048
     Dates: start: 20111230, end: 20120104
  4. VITAMIN B-12 [Concomitant]
     Dosage: 1 VIAL PER WEEK
  5. LEVOTHYROXINE SODIUM [Concomitant]
  6. ZOLPIDEM [Suspect]
     Dosage: 1 DF, DAILY
     Route: 048
     Dates: start: 20120108
  7. GLUCOPHAGE [Concomitant]
     Dosage: 1 DF, DAILY
  8. ATACAND [Concomitant]
     Dosage: 1 DF, DAILY
  9. ACETAMINOPHEN [Concomitant]

REACTIONS (8)
  - PALPITATIONS [None]
  - ARTHRALGIA [None]
  - MYALGIA [None]
  - HEADACHE [None]
  - GAIT DISTURBANCE [None]
  - DIARRHOEA [None]
  - TENDON PAIN [None]
  - ASTHENIA [None]
